FAERS Safety Report 5398882-2 (Version None)
Quarter: 2007Q3

REPORT INFORMATION
  Report Type: 
  Country: None (occurrence: None)
  Receive Date: 20070727
  Receipt Date: 20070719
  Transmission Date: 20080115
  Serious: Yes (Hospitalization, Other)
  Sender: FDA-Public Use
  Company Number: HQWYE200915MAY07

PATIENT
  Sex: Male
  Weight: 84 kg

DRUGS (3)
  1. RAPAMUNE [Suspect]
     Indication: PROPHYLAXIS AGAINST TRANSPLANT REJECTION
     Route: 048
     Dates: start: 20070401, end: 20070501
  2. RAPAMUNE [Suspect]
     Route: 048
     Dates: start: 20070501, end: 20070522
  3. ZEFFIX [Concomitant]
     Indication: ANTIVIRAL PROPHYLAXIS
     Dosage: UNKNOWN
     Route: 065

REACTIONS (2)
  - APHTHOUS STOMATITIS [None]
  - LIVER TRANSPLANT REJECTION [None]
